FAERS Safety Report 10177443 (Version 1)
Quarter: 2014Q2

REPORT INFORMATION
  Report Type: Spontaneous
  Country: FR (occurrence: FR)
  Receive Date: 20140516
  Receipt Date: 20140516
  Transmission Date: 20141212
  Serious: Yes (Hospitalization)
  Sender: FDA-Public Use
  Company Number: PHHY2014FR059092

PATIENT
  Age: 88 Year
  Sex: Male

DRUGS (7)
  1. EXELON PATCH [Suspect]
     Indication: DEMENTIA ALZHEIMER^S TYPE
     Dosage: 4.6 MG, PER 24 HOURS
     Route: 062
     Dates: start: 201403, end: 20140404
  2. PREVISCAN [Concomitant]
     Dosage: 20 MG, UNK
  3. AVODART [Concomitant]
     Dosage: 0.5 MG, UNK
  4. TEMERIT [Concomitant]
     Dosage: 5 MG, UNK
  5. UVEDOSE [Concomitant]
     Dosage: 100000 IU, UNK
  6. ART [Concomitant]
     Dosage: 50 MG, UNK
  7. PERMIXON [Concomitant]
     Dosage: UNK UKN, UNK

REACTIONS (1)
  - Duodenitis [Recovered/Resolved]
